FAERS Safety Report 10027007 (Version 1)
Quarter: 2014Q1

REPORT INFORMATION
  Report Type: Spontaneous
  Country: FR (occurrence: None)
  Receive Date: 20140318
  Receipt Date: 20140318
  Transmission Date: 20141002
  Serious: Yes (Other)
  Sender: FDA-Public Use
  Company Number: FR-ALSI-201400040

PATIENT
  Age: 71 Year
  Sex: Female

DRUGS (6)
  1. CARBON DIOXIDE [Suspect]
     Indication: INVESTIGATION
  2. OXYGEN [Concomitant]
  3. AIR, MEDICINAL [Concomitant]
  4. DESFLURANE [Concomitant]
  5. SUFENTANIL [Concomitant]
  6. CISATRACURIUM [Concomitant]

REACTIONS (5)
  - Pneumothorax [None]
  - Pneumomediastinum [None]
  - Subcutaneous emphysema [None]
  - Haemodynamic instability [None]
  - Hypotension [None]
